FAERS Safety Report 5289193-4 (Version None)
Quarter: 2007Q1

REPORT INFORMATION
  Report Type: 
  Country: None (occurrence: None)
  Receive Date: 20070118
  Receipt Date: 20061009
  Transmission Date: 20070707
  Serious: Yes (Other)
  Sender: FDA-Public Use
  Company Number: HQWYE852610OCT06

PATIENT
  Age: 81 Year
  Sex: Female
  Weight: 48.12 kg

DRUGS (3)
  1. ADVIL PM [Suspect]
     Indication: INSOMNIA
     Dosage: 1 CAPLET X 1, ORAL
     Route: 048
     Dates: start: 20061007, end: 20061007
  2. FLEX-A-MIN (GLUCOSAMINE SULFATE/CHONDROITIN SULFATE/METHYLSULFONYLMETH [Concomitant]
  3. FLEA-A-MIN(GLUCOSAMIN SULFATE/CHONDROITIN SULFATE/METHYLSULFONYLMETHAN [Concomitant]

REACTIONS (1)
  - DRUG INEFFECTIVE [None]
